FAERS Safety Report 13830682 (Version 1)
Quarter: 2017Q3

REPORT INFORMATION
  Report Type: Spontaneous
  Country: US (occurrence: US)
  Receive Date: 20170803
  Receipt Date: 20170803
  Transmission Date: 20171127
  Serious: No
  Sender: FDA-Public Use
  Company Number: US-SA-2017SA134032

PATIENT
  Sex: Female

DRUGS (2)
  1. PRALUENT [Suspect]
     Active Substance: ALIROCUMAB
     Route: 058
     Dates: start: 201612
  2. ALIROCUMAB PREFILLED PEN [Concomitant]
     Active Substance: ALIROCUMAB
     Dates: start: 201612

REACTIONS (5)
  - Pollakiuria [Unknown]
  - Feeling abnormal [Unknown]
  - Vulvovaginal pain [Unknown]
  - Unevaluable event [Unknown]
  - Cystitis [Unknown]

NARRATIVE: CASE EVENT DATE: 201707
